FAERS Safety Report 10989027 (Version 1)
Quarter: 2015Q2

REPORT INFORMATION
  Report Type: Spontaneous
  Country: US (occurrence: US)
  Receive Date: 20150406
  Receipt Date: 20150406
  Transmission Date: 20150821
  Serious: Yes (Other)
  Sender: FDA-Public Use
  Company Number: US-UCBSA-042848

PATIENT
  Age: 40 Year
  Sex: Female
  Weight: 64 kg

DRUGS (15)
  1. ARMODAFINIL. [Suspect]
     Active Substance: ARMODAFINIL
     Indication: CATAPLEXY
     Dosage: 250 MG
     Dates: start: 201101
  2. MULTIVITAMINS [Concomitant]
     Active Substance: VITAMINS
     Indication: PRODUCT USED FOR UNKNOWN INDICATION
     Dosage: UNK
  3. ARMODAFINIL. [Suspect]
     Active Substance: ARMODAFINIL
     Indication: NARCOLEPSY
  4. IBUPROFEN. [Concomitant]
     Active Substance: IBUPROFEN
     Indication: PAIN
     Dosage: 800 AS NEEDED
  5. XYREM [Suspect]
     Active Substance: SODIUM OXYBATE
     Indication: CATAPLEXY
     Dosage: 3 G, 2X/DAY (BID)
     Route: 048
     Dates: start: 2011, end: 2011
  6. XYREM [Suspect]
     Active Substance: SODIUM OXYBATE
     Dosage: UNKNOWN DOSE
     Route: 048
     Dates: end: 201206
  7. XYREM [Suspect]
     Active Substance: SODIUM OXYBATE
     Dosage: 2.25 G, 2X/DAY (BID)
     Route: 048
     Dates: start: 201306, end: 2014
  8. NUVIGIL [Suspect]
     Active Substance: ARMODAFINIL
     Indication: NARCOLEPSY
  9. XYREM [Suspect]
     Active Substance: SODIUM OXYBATE
     Dosage: 3 G, 2X/DAY (BID)
     Route: 048
     Dates: start: 201402, end: 2014
  10. XYREM [Suspect]
     Active Substance: SODIUM OXYBATE
     Dosage: 2.25 G, 2X/DAY (BID)
     Route: 048
     Dates: start: 201406
  11. XYREM [Suspect]
     Active Substance: SODIUM OXYBATE
     Indication: NARCOLEPSY
     Dosage: 2.25 G, 2X/DAY (BID)
     Route: 048
     Dates: start: 201105, end: 2011
  12. IBUPROFEN. [Concomitant]
     Active Substance: IBUPROFEN
     Indication: HEADACHE
  13. LORTAB [Concomitant]
     Active Substance: ACETAMINOPHEN\HYDROCODONE BITARTRATE
     Indication: PRODUCT USED FOR UNKNOWN INDICATION
     Dosage: UNK
     Dates: start: 20131004
  14. NUVIGIL [Suspect]
     Active Substance: ARMODAFINIL
     Indication: CATAPLEXY
     Dates: start: 201101
  15. NEUROTIN [Concomitant]
     Active Substance: GABAPENTIN
     Indication: PRODUCT USED FOR UNKNOWN INDICATION
     Dosage: UNK

REACTIONS (14)
  - Hair growth abnormal [Recovered/Resolved]
  - Dehydration [Unknown]
  - Drug dependence [None]
  - Dyspnoea [Unknown]
  - Chest discomfort [Unknown]
  - Muscle spasms [Unknown]
  - Dysgeusia [Unknown]
  - Pain [Unknown]
  - Weight decreased [Unknown]
  - Feeling abnormal [Unknown]
  - Dysphonia [Unknown]
  - Feeling drunk [Recovered/Resolved]
  - Blood potassium decreased [Unknown]
  - Enuresis [Unknown]

NARRATIVE: CASE EVENT DATE: 2011
